FAERS Safety Report 8008749-9 (Version None)
Quarter: 2011Q4

REPORT INFORMATION
  Report Type: 
  Country: None (occurrence: None)
  Receive Date: 20111227
  Receipt Date: 20111221
  Transmission Date: 20120403
  Serious: Yes (Death, Other)
  Sender: FDA-Public Use
  Company Number: JP-BAYER-2011-000387

PATIENT
  Age: 67 Year
  Sex: Male

DRUGS (12)
  1. NEXAVAR [Suspect]
     Indication: HEPATIC NEOPLASM MALIGNANT
     Dosage: DAILY DOSE 400 MG
     Route: 048
     Dates: start: 20101214, end: 20101227
  2. BISOPROLOL FUMARATE [Concomitant]
     Indication: HYPERTENSION
     Dosage: DAILY DOSE 5 MG
     Route: 048
  3. URSO 250 [Concomitant]
     Indication: HEPATIC FAILURE
     Dosage: DAILY DOSE 300 MG
     Route: 048
  4. REBAMIPIDE [Concomitant]
     Indication: CANCER PAIN
     Dosage: DAILY DOSE 300 MG
     Route: 048
  5. REBAMIPIDE [Concomitant]
     Indication: PROPHYLAXIS AGAINST GASTROINTESTINAL ULCER
  6. NEXAVAR [Suspect]
     Dosage: 200 MG, BID
     Route: 048
     Dates: start: 20110510, end: 20110101
  7. LOBU [Concomitant]
     Indication: CANCER PAIN
     Dosage: DAILY DOSE 180 MG
     Route: 048
  8. OLMESARTAN MEDOXOMIL [Concomitant]
     Indication: HYPERTENSION
     Dosage: DAILY DOSE 10 MG
     Route: 048
  9. ALLOPURINOL [Concomitant]
     Indication: HYPERURICAEMIA
     Dosage: DAILY DOSE 200 MG
     Route: 048
  10. OXINORM [Concomitant]
     Indication: CANCER PAIN
     Dosage: UNK
     Route: 048
  11. NIFEDIPINE [Concomitant]
     Indication: HYPERTENSION
     Dosage: DAILY DOSE 20 MG
     Route: 048
  12. FENTANYL-100 [Concomitant]
     Indication: CANCER PAIN
     Dosage: UNK
     Route: 062

REACTIONS (8)
  - HEPATIC NEOPLASM MALIGNANT [None]
  - INTERSTITIAL LUNG DISEASE [None]
  - COUGH [None]
  - PALMAR-PLANTAR ERYTHRODYSAESTHESIA SYNDROME [None]
  - BLOOD PRESSURE INCREASED [None]
  - DYSPNOEA [None]
  - DECREASED APPETITE [None]
  - GAIT DISTURBANCE [None]
